FAERS Safety Report 4678335-7 (Version None)
Quarter: 2005Q2

REPORT INFORMATION
  Report Type: 
  Country: None (occurrence: None)
  Receive Date: 20050601
  Receipt Date: 20050519
  Transmission Date: 20051028
  Serious: Yes (Hospitalization)
  Sender: FDA-Public Use
  Company Number: US-KINGPHARMUSA00001-K200500661

PATIENT
  Age: 8 Year
  Sex: Male

DRUGS (1)
  1. LORABID [Suspect]
     Indication: OTITIS MEDIA
     Route: 048
     Dates: start: 20050201

REACTIONS (4)
  - ARTHRALGIA [None]
  - DYSPNOEA [None]
  - ERYTHEMA MULTIFORME [None]
  - SWELLING FACE [None]
